FAERS Safety Report 12548096 (Version 1)
Quarter: 2016Q3

REPORT INFORMATION
  Report Type: Spontaneous
  Country: US (occurrence: US)
  Receive Date: 20160712
  Receipt Date: 20160712
  Transmission Date: 20161109
  Serious: Yes (Other)
  Sender: FDA-Public Use
  Company Number: US-BAUSCH-BL-2016-015388

PATIENT
  Sex: Female

DRUGS (2)
  1. RETIN-A [Suspect]
     Active Substance: TRETINOIN
     Indication: ACNE
     Route: 061
  2. VITAMIN D [Concomitant]
     Active Substance: CHOLECALCIFEROL
     Indication: PRODUCT USED FOR UNKNOWN INDICATION
     Dates: start: 2015

REACTIONS (5)
  - Erythema [Recovered/Resolved]
  - Burning sensation [Recovered/Resolved]
  - Skin tightness [Recovered/Resolved]
  - Diabetes mellitus [Unknown]
  - Facial pain [Recovered/Resolved]

NARRATIVE: CASE EVENT DATE: 2015
